FAERS Safety Report 7866275-1 (Version None)
Quarter: 2011Q4

REPORT INFORMATION
  Report Type: 
  Country: None (occurrence: None)
  Receive Date: 20111028
  Receipt Date: 20110524
  Transmission Date: 20120403
  Serious: Yes (Hospitalization)
  Sender: FDA-Public Use
  Company Number: US-GLAXOSMITHKLINE-A0928941A

PATIENT
  Age: 92 Year
  Sex: Female

DRUGS (11)
  1. LIPITOR [Concomitant]
  2. SPIRONOLACTONE [Concomitant]
  3. CHLORTHALIDONE [Concomitant]
  4. NORVASC [Concomitant]
  5. SYNTHROID [Concomitant]
  6. OXYGEN [Concomitant]
  7. SINGULAIR [Concomitant]
  8. POTASSIUM CHLORIDE [Concomitant]
  9. ADVAIR DISKUS 100/50 [Suspect]
     Indication: EMPHYSEMA
     Route: 055
  10. ASPIRIN [Concomitant]
  11. VITAMIN-MINERAL COMPOUND TAB [Concomitant]

REACTIONS (1)
  - PNEUMONIA [None]
